FAERS Safety Report 7766593-1 (Version None)
Quarter: 2011Q3

REPORT INFORMATION
  Report Type: 
  Country: None (occurrence: None)
  Receive Date: 20110916
  Receipt Date: 20110901
  Transmission Date: 20111222
  Serious: Yes (Death, Hospitalization)
  Sender: FDA-Public Use
  Company Number: 2011SGN00115

PATIENT
  Age: 88 Year
  Sex: Male
  Weight: 72.1219 kg

DRUGS (1)
  1. SGN-35 (CAC10-VCMMAE) INJECTION [Suspect]
     Indication: HODGKIN'S DISEASE
     Dosage: 1.8 MG/KG, Q21D, INTRAVENOUS
     Route: 042
     Dates: start: 20110531, end: 20110531

REACTIONS (17)
  - RENAL CYST [None]
  - ACUTE RESPIRATORY DISTRESS SYNDROME [None]
  - HEPATIC CIRRHOSIS [None]
  - LETHARGY [None]
  - NEUTROPENIC COLITIS [None]
  - PYREXIA [None]
  - ENTEROCOLITIS [None]
  - FAILURE TO THRIVE [None]
  - PNEUMONIA ASPIRATION [None]
  - ACUTE RESPIRATORY FAILURE [None]
  - DEHYDRATION [None]
  - ATELECTASIS [None]
  - CHILLS [None]
  - DIVERTICULUM INTESTINAL [None]
  - HYPOTENSION [None]
  - ASCITES [None]
  - WHITE BLOOD CELL COUNT DECREASED [None]
